FAERS Safety Report 26014069 (Version 1)
Quarter: 2025Q4

REPORT INFORMATION
  Report Type: Spontaneous
  Country: PE (occurrence: PE)
  Receive Date: 20251108
  Receipt Date: 20251108
  Transmission Date: 20260118
  Serious: Yes (Life-Threatening, Hospitalization)
  Sender: ACCORD
  Company Number: PE-MLMSERVICE-20251020-PI683830-00152-1

PATIENT
  Age: 51 Year
  Sex: Female

DRUGS (5)
  1. FLUOROURACIL [Suspect]
     Active Substance: FLUOROURACIL
     Indication: Adenocarcinoma of colon
  2. OXALIPLATIN [Suspect]
     Active Substance: OXALIPLATIN
     Indication: Adenocarcinoma of colon
  3. DEXAMETHASONE [Suspect]
     Active Substance: DEXAMETHASONE
     Indication: Adenocarcinoma of colon
     Dosage: GIVEN BEFORE EACH CHEMOTHERAPY SESSION
  4. LEUCOVORIN [Suspect]
     Active Substance: LEUCOVORIN\LEUCOVORIN CALCIUM
     Indication: Adenocarcinoma of colon
  5. BEVACIZUMAB [Suspect]
     Active Substance: BEVACIZUMAB
     Indication: Adenocarcinoma of colon

REACTIONS (6)
  - Nocardiosis [Recovered/Resolved]
  - Pneumonia necrotising [Recovered/Resolved]
  - Infectious pleural effusion [Recovered/Resolved]
  - Pneumonia bacterial [Recovered/Resolved]
  - Haemothorax [Recovered/Resolved]
  - Lung abscess [Recovered/Resolved]
